FAERS Safety Report 10098143 (Version 1)
Quarter: 2014Q2

REPORT INFORMATION
  Report Type: Spontaneous
  Country: IT (occurrence: None)
  Receive Date: 20140421
  Receipt Date: 20140421
  Transmission Date: 20141212
  Serious: Yes (Hospitalization)
  Sender: FDA-Public Use
  Company Number: AUR-APL-2014-04711

PATIENT
  Age: 23 Month
  Sex: Male

DRUGS (3)
  1. ATENOLOL (ATENOLOL) [Suspect]
     Indication: HYPERTENSION
  2. RAMIPRIL (RAMIPRIL) [Suspect]
     Indication: HYPERTENSION
  3. NIFEDIPINE (NIFEDIPINE) (NIFEDIPINE) [Suspect]
     Indication: HYPERTENSION

REACTIONS (2)
  - Optic ischaemic neuropathy [None]
  - Blindness [None]
